FAERS Safety Report 16679661 (Version 2)
Quarter: 2019Q3

REPORT INFORMATION
  Report Type: Spontaneous
  Country: US (occurrence: US)
  Receive Date: 20190807
  Receipt Date: 20190812
  Transmission Date: 20191004
  Serious: Yes (Other)
  Sender: FDA-Public Use
  Company Number: US-COOPERSURGICAL, INC.-US-2019CPS002383

PATIENT
  Age: 34 Year
  Sex: Female

DRUGS (1)
  1. PARAGARD T 380A [Suspect]
     Active Substance: COPPER
     Indication: CONTRACEPTION
     Dosage: UNK
     Route: 015
     Dates: start: 20150601, end: 20190730

REACTIONS (8)
  - Device issue [Recovered/Resolved]
  - Abdominal discomfort [Unknown]
  - Device expulsion [Recovered/Resolved]
  - Nausea [Unknown]
  - Vaginal haemorrhage [Unknown]
  - Pregnancy with contraceptive device [Not Recovered/Not Resolved]
  - Breast tenderness [Unknown]
  - Drug ineffective [Recovered/Resolved]

NARRATIVE: CASE EVENT DATE: 20170306
